FAERS Safety Report 5510155-3 (Version None)
Quarter: 2007Q4

REPORT INFORMATION
  Report Type: 
  Country: None (occurrence: None)
  Receive Date: 20071108
  Receipt Date: 20071105
  Transmission Date: 20080405
  Serious: Yes (Death, Hospitalization)
  Sender: FDA-Public Use
  Company Number: IT-BRISTOL-MYERS SQUIBB COMPANY-13969779

PATIENT
  Age: 55 Year
  Sex: Male

DRUGS (5)
  1. CISPLATIN [Suspect]
     Indication: SMALL CELL LUNG CANCER STAGE UNSPECIFIED
     Dosage: FIRST 4 DOSES FROM SEP-2004 - DOSE NOT STATED. NEXT 2 DOSES FROM DEC-2004 - 60 MG/M2 ON DAY.
     Dates: start: 20040901
  2. ETOPOSIDE [Suspect]
     Indication: SMALL CELL LUNG CANCER STAGE UNSPECIFIED
     Dosage: FIRST 4 DOSES FROM SEP 2004 - DOSE NOT STATED. NEXT 2 DOSES FROM DEC 2004 - 120 MG/M2 ON DAYS 1-3
     Dates: start: 20040901
  3. DEXAMETHASONE [Suspect]
     Indication: SMALL CELL LUNG CANCER STAGE UNSPECIFIED
     Route: 030
  4. DEXAMETHASONE [Suspect]
     Indication: PROPHYLAXIS
     Route: 030
  5. RADIOTHERAPY [Suspect]
     Indication: SMALL CELL LUNG CANCER STAGE UNSPECIFIED
     Dates: start: 20041201

REACTIONS (1)
  - ENCEPHALITIS HERPES [None]
